FAERS Safety Report 6167325-3 (Version None)
Quarter: 2009Q2

REPORT INFORMATION
  Report Type: 
  Country: None (occurrence: None)
  Receive Date: 20090423
  Receipt Date: 20090408
  Transmission Date: 20091009
  Serious: Yes (Other)
  Sender: FDA-Public Use
  Company Number: 2009-194748-NL

PATIENT
  Age: 7 Month
  Sex: Male

DRUGS (2)
  1. REMERON SOLTAB [Suspect]
     Dosage: ORAL
     Route: 048
     Dates: start: 20090101
  2. PREVACID [Suspect]

REACTIONS (2)
  - DEVELOPMENTAL DELAY [None]
  - DRUG PRESCRIBING ERROR [None]
